FAERS Safety Report 8818364 (Version 3)
Quarter: 2012Q4

REPORT INFORMATION
  Report Type: 
  Country: MX (occurrence: MX)
  Receive Date: 20121001
  Receipt Date: 20121018
  Transmission Date: 20130627
  Serious: Yes (Hospitalization)
  Sender: FDA-Public Use
  Company Number: MX-ROCHE-1135185

PATIENT
  Sex: Female

DRUGS (1)
  1. ACTEMRA [Suspect]
     Indication: ARTHRITIS
     Route: 042
     Dates: start: 201206

REACTIONS (3)
  - Encephalitis [Not Recovered/Not Resolved]
  - Headache [Unknown]
  - Infection [Unknown]
